FAERS Safety Report 8844934 (Version 1)
Quarter: 2012Q4

REPORT INFORMATION
  Report Type: Spontaneous
  Country: US (occurrence: None)
  Receive Date: 20121002
  Receipt Date: 20121002
  Transmission Date: 20130627
  Serious: Yes (Hospitalization, Other)
  Sender: FDA-Public Use
  Company Number: RB-36684-2012

PATIENT
  Age: 50 Year
  Sex: Male

DRUGS (2)
  1. SUBOXONE [Suspect]
     Indication: DRUG DEPENDENCE
     Dosage: (Dosing details unknown Sublingual)
     Route: 060
     Dates: start: 2009
  2. SUBOXONE [Suspect]
     Dosage: (Dosing details unknown Sublingual)
     Route: 060
     Dates: start: 201010, end: 201201

REACTIONS (2)
  - Oedema peripheral [None]
  - Pneumonia staphylococcal [None]
